FAERS Safety Report 7363485-7 (Version None)
Quarter: 2011Q1

REPORT INFORMATION
  Report Type: 
  Country: None (occurrence: None)
  Receive Date: 20110321
  Receipt Date: 20110221
  Transmission Date: 20110831
  Serious: No
  Sender: FDA-Public Use
  Company Number: US-B.I. PHARMACEUTICALS,INC./RIDGEFIELD-2011-BP-00728BP

PATIENT
  Age: 81 Year
  Sex: Female
  Weight: 62.59 kg

DRUGS (7)
  1. LIPITOR [Concomitant]
     Route: 048
     Dates: start: 20090512
  2. ELAVIL [Concomitant]
     Route: 048
     Dates: start: 20100316
  3. DILTIAZEM [Concomitant]
     Route: 048
     Dates: start: 20100316
  4. PRILOSEC [Concomitant]
     Route: 048
     Dates: start: 20090512
  5. PRADAXA [Suspect]
     Indication: ATRIAL FIBRILLATION
     Dosage: 300 MG
     Route: 048
     Dates: start: 20101221, end: 20110103
  6. METOPROLOL [Concomitant]
     Route: 048
     Dates: start: 20090512
  7. LISINOPRIL [Concomitant]
     Route: 048
     Dates: start: 20090512

REACTIONS (7)
  - VOMITING [None]
  - RASH [None]
  - ADVERSE DRUG REACTION [None]
  - HAEMORRHOIDAL HAEMORRHAGE [None]
  - OEDEMA PERIPHERAL [None]
  - ABDOMINAL PAIN [None]
  - NAUSEA [None]
